FAERS Safety Report 24366881 (Version 1)
Quarter: 2024Q3

REPORT INFORMATION
  Report Type: Spontaneous
  Country: CH (occurrence: CH)
  Receive Date: 20240926
  Receipt Date: 20240926
  Transmission Date: 20241016
  Serious: Yes (Hospitalization)
  Sender: Waylis
  Company Number: None

PATIENT
  Age: 24 Year
  Sex: Male

DRUGS (4)
  1. VALIUM [Suspect]
     Active Substance: DIAZEPAM
     Indication: Intentional overdose
     Dosage: INCONGRUOUS INTAKE (OVERDOSE) VOLUNTARY FOR SUICIDAL PURPOSES OF 300 MG VALIUM
     Route: 048
     Dates: start: 20240722, end: 20240722
  2. CLOTHIAPINE [Concomitant]
     Active Substance: CLOTHIAPINE
     Indication: Product used for unknown indication
     Dosage: CHRONIC THERAPY
     Route: 048
  3. ZOLPIDEM TARTRATE [Concomitant]
     Active Substance: ZOLPIDEM TARTRATE
     Indication: Product used for unknown indication
     Dosage: CHRONIC THERAPY
     Route: 048
  4. Paroxetin zentiva [Concomitant]
     Indication: Product used for unknown indication
     Dosage: CHRONIC THERAPY
     Route: 048

REACTIONS (3)
  - Suicide attempt [Recovered/Resolved]
  - Psychomotor skills impaired [Recovered/Resolved]
  - Intentional overdose [Recovered/Resolved]

NARRATIVE: CASE EVENT DATE: 20240722
